FAERS Safety Report 9056000 (Version 1)
Quarter: 2013Q1

REPORT INFORMATION
  Report Type: Spontaneous
  Country: AT (occurrence: AT)
  Receive Date: 20130205
  Receipt Date: 20130205
  Transmission Date: 20140127
  Serious: Yes (Hospitalization)
  Sender: FDA-Public Use
  Company Number: AT-JNJFOC-20130113048

PATIENT
  Age: 70 None
  Sex: Male
  Weight: 105 kg

DRUGS (6)
  1. STELARA [Suspect]
     Indication: PSORIASIS
     Route: 058
  2. STELARA [Suspect]
     Indication: PSORIASIS
     Route: 058
     Dates: end: 201210
  3. STELARA [Suspect]
     Indication: PSORIASIS
     Route: 058
     Dates: start: 201008
  4. LOVENOX [Suspect]
     Indication: ATRIAL FLUTTER
     Route: 065
     Dates: start: 20130110
  5. LOVENOX [Suspect]
     Indication: ATRIAL FLUTTER
     Route: 065
  6. LOVENOX [Suspect]
     Indication: ATRIAL FLUTTER
     Route: 065

REACTIONS (9)
  - Cholangiocarcinoma [Unknown]
  - Cholangitis [Unknown]
  - Atrial flutter [Unknown]
  - Atrial fibrillation [Unknown]
  - Hypertension [Unknown]
  - Sepsis [Unknown]
  - Melaena [Unknown]
  - Hypoxia [Unknown]
  - Weight increased [Unknown]
